FAERS Safety Report 4358406-5 (Version None)
Quarter: 2004Q2

REPORT INFORMATION
  Report Type: 
  Country: None (occurrence: None)
  Receive Date: 20040512
  Receipt Date: 20040512
  Transmission Date: 20050107
  Serious: Yes (Other)
  Sender: FDA-Public Use
  Company Number: None

PATIENT
  Age: 46 Year
  Sex: Male

DRUGS (2)
  1. CRESTOR [Suspect]
     Indication: MYALGIA
     Dosage: 10 MG QD
     Dates: start: 20040205
  2. CRESTOR [Suspect]
     Indication: MYALGIA
     Dosage: 10 MG QD
     Dates: start: 20040218

REACTIONS (2)
  - MUSCLE TWITCHING [None]
  - MYALGIA [None]
